FAERS Safety Report 13002505 (Version 1)
Quarter: 2016Q4

REPORT INFORMATION
  Report Type: Spontaneous
  Country: FR (occurrence: FR)
  Receive Date: 20161206
  Receipt Date: 20161206
  Transmission Date: 20170207
  Serious: Yes (Death)
  Sender: FDA-Public Use
  Company Number: FR-IMPAX LABORATORIES, INC-2016-IPXL-02247

PATIENT
  Age: 34 Year
  Sex: Male

DRUGS (8)
  1. LOXAPINE. [Suspect]
     Active Substance: LOXAPINE
     Dosage: 100 MG; UNK; INJECTION
     Route: 030
  2. DIAZEPAM. [Suspect]
     Active Substance: DIAZEPAM
     Indication: PRODUCT USED FOR UNKNOWN INDICATION
     Dosage: UNK
     Route: 065
  3. LOXAPINE. [Suspect]
     Active Substance: LOXAPINE
     Indication: PRODUCT USED FOR UNKNOWN INDICATION
     Dosage: UNK; ORAL SOLUTION
     Route: 048
     Dates: start: 20120614
  4. QUETIAPINE. [Suspect]
     Active Substance: QUETIAPINE
     Indication: AGGRESSION
  5. DIVALPROEX SODIUM ER [Suspect]
     Active Substance: DIVALPROEX SODIUM
     Indication: PRODUCT USED FOR UNKNOWN INDICATION
     Dosage: UNK
     Route: 065
  6. QUETIAPINE. [Suspect]
     Active Substance: QUETIAPINE
     Indication: AGITATION
     Dosage: 600 MG, DAILY
     Route: 065
  7. TROPATEPINE [Suspect]
     Active Substance: TROPATEPINE
     Indication: AGITATION
     Dosage: UNK
     Route: 065
  8. TROPATEPINE [Suspect]
     Active Substance: TROPATEPINE
     Indication: AGGRESSION

REACTIONS (5)
  - Multiple organ dysfunction syndrome [Fatal]
  - Colitis ischaemic [Fatal]
  - Renal failure [Fatal]
  - Cardiac arrest [Fatal]
  - Systemic infection [Fatal]
